FAERS Safety Report 8816972 (Version 1)
Quarter: 2012Q4

REPORT INFORMATION
  Report Type: Spontaneous
  Country: US (occurrence: None)
  Receive Date: 20121002
  Receipt Date: 20121002
  Transmission Date: 20130627
  Serious: Yes (Hospitalization, Other)
  Sender: FDA-Public Use
  Company Number: None

PATIENT
  Sex: Female
  Weight: 51 kg

DRUGS (1)
  1. BACTRIM [Suspect]
     Indication: UTI
     Dates: start: 20120516, end: 20120524

REACTIONS (10)
  - Stomatitis [None]
  - Stomatitis [None]
  - Glossitis [None]
  - Glossodynia [None]
  - Skin exfoliation [None]
  - Influenza like illness [None]
  - Mouth haemorrhage [None]
  - Rash [None]
  - Oral pain [None]
  - Glossodynia [None]
